FAERS Safety Report 19046618 (Version 1)
Quarter: 2021Q1

REPORT INFORMATION
  Report Type: Spontaneous
  Country: CH (occurrence: CH)
  Receive Date: 20210323
  Receipt Date: 20210323
  Transmission Date: 20210420
  Serious: Yes (Other)
  Sender: FDA-Public Use
  Company Number: CH-AMGEN-CHESP2021041439

PATIENT

DRUGS (4)
  1. CALCIMAGON [CALCIUM] [Concomitant]
     Dosage: 500/800, ONE PER DAY
  2. PROLIA [Suspect]
     Active Substance: DENOSUMAB
     Indication: OSTEOPOROSIS
     Dosage: UNK
     Route: 065
  3. VITAMINE D [Concomitant]
     Active Substance: CHOLECALCIFEROL
     Dosage: 15 DROPS/DAY AND LATER CHANGE TO 2 X 1000 UNITS OF VITAMIN D
  4. FORSTEO [Concomitant]
     Active Substance: TERIPARATIDE
     Indication: OSTEOPOROSIS POSTMENOPAUSAL

REACTIONS (3)
  - Vitamin D decreased [Unknown]
  - Thoracic vertebral fracture [Unknown]
  - Osteoporosis [Unknown]

NARRATIVE: CASE EVENT DATE: 202011
